FAERS Safety Report 6594621-8 (Version None)
Quarter: 2010Q1

REPORT INFORMATION
  Report Type: 
  Country: None (occurrence: None)
  Receive Date: 20100222
  Receipt Date: 20090611
  Transmission Date: 20100710
  Serious: No
  Sender: FDA-Public Use
  Company Number: US-BRISTOL-MYERS SQUIBB COMPANY-14663330

PATIENT
  Sex: Female
  Weight: 58 kg

DRUGS (1)
  1. TAXOL [Suspect]
     Indication: BREAST CANCER METASTATIC
     Dosage: TAXOL WEEKLY THREE OUT OF FOUR

REACTIONS (5)
  - BLOOD PRESSURE INCREASED [None]
  - CHEST DISCOMFORT [None]
  - DYSPHAGIA [None]
  - DYSPNOEA [None]
  - EAR CONGESTION [None]
